FAERS Safety Report 21532512 (Version 1)
Quarter: 2022Q4

REPORT INFORMATION
  Report Type: Spontaneous
  Country: CO (occurrence: CO)
  Receive Date: 20221101
  Receipt Date: 20221101
  Transmission Date: 20230113
  Serious: Yes (Life-Threatening, Other)
  Sender: FDA-Public Use
  Company Number: CO-009507513-1805COL001124

PATIENT
  Age: 24 Year
  Sex: Female

DRUGS (2)
  1. ETONOGESTREL [Suspect]
     Active Substance: ETONOGESTREL
     Indication: Contraception
     Dosage: 1 IMPLANT
     Route: 059
     Dates: start: 20150728, end: 202208
  2. CYPROTERONE ACETATE\ETHINYL ESTRADIOL [Suspect]
     Active Substance: CYPROTERONE ACETATE\ETHINYL ESTRADIOL
     Dosage: 2 CYCLES
     Dates: start: 202101, end: 2021

REACTIONS (15)
  - Ovarian enlargement [Recovered/Resolved]
  - Colitis [Unknown]
  - Ovarian cyst [Recovered/Resolved]
  - Dysmenorrhoea [Unknown]
  - Amenorrhoea [Recovered/Resolved]
  - Intermenstrual bleeding [Unknown]
  - Premenstrual syndrome [Unknown]
  - Irritable bowel syndrome [Unknown]
  - Fibrocystic breast disease [Not Recovered/Not Resolved]
  - Hormone level abnormal [Unknown]
  - Implant site pain [Unknown]
  - Vaginal infection [Unknown]
  - Depression [Unknown]
  - Dyspareunia [Unknown]
  - Incorrect product administration duration [Recovered/Resolved]

NARRATIVE: CASE EVENT DATE: 20150101
